FAERS Safety Report 8413764-7 (Version None)
Quarter: 2012Q2

REPORT INFORMATION
  Report Type: 
  Country: None (occurrence: None)
  Receive Date: 20120605
  Receipt Date: 20120521
  Transmission Date: 20120825
  Serious: Yes (Other)
  Sender: FDA-Public Use
  Company Number: US-WATSON-2007-03597

PATIENT
  Age: 70 Year
  Sex: Male

DRUGS (4)
  1. PIPERACILLIN AND TAZOBACTAM [Concomitant]
     Indication: BACTERAEMIA
     Dosage: UNK, UNKNOWN
     Route: 065
  2. IMIPENEM [Concomitant]
     Indication: BACTERAEMIA
     Dosage: UNK, UNKNOWN
     Route: 065
  3. CEFAZOLIN SODIUM                   09 [Suspect]
     Indication: ANTIBIOTIC PROPHYLAXIS
     Dosage: UNKNOWN DOSE X 2 DAYS
     Route: 042
     Dates: start: 20070101, end: 20070101
  4. CEFTRIAXONE SODIUM [Suspect]
     Indication: ANTIBIOTIC PROPHYLAXIS
     Dosage: UNKNOWN DOSE X 6 WEEKS
     Route: 042
     Dates: start: 20070101, end: 20070101

REACTIONS (1)
  - HAEMOLYTIC ANAEMIA [None]
